FAERS Safety Report 7327191-7 (Version None)
Quarter: 2011Q1

REPORT INFORMATION
  Report Type: 
  Country: None (occurrence: None)
  Receive Date: 20110302
  Receipt Date: 20110228
  Transmission Date: 20110831
  Serious: Yes (Other)
  Sender: FDA-Public Use
  Company Number: US-PFIZER INC-2011043687

PATIENT
  Sex: Male
  Weight: 70.295 kg

DRUGS (2)
  1. MULTIVITAMIN [Concomitant]
     Dosage: UNK
  2. ROBITUSSIN COUGH AND CHEST CONGESTION DM [Suspect]
     Dosage: EVERY 12 HOURS
     Route: 048
     Dates: start: 20110227, end: 20110227

REACTIONS (4)
  - COUGH [None]
  - NASAL CONGESTION [None]
  - INSOMNIA [None]
  - CHOKING [None]
